FAERS Safety Report 17466062 (Version 1)
Quarter: 2020Q1

REPORT INFORMATION
  Report Type: Spontaneous
  Country: DE (occurrence: DE)
  Receive Date: 20200227
  Receipt Date: 20200227
  Transmission Date: 20200409
  Serious: Yes (Hospitalization, Other)
  Sender: FDA-Public Use
  Company Number: DE-GLAXOSMITHKLINE-DE2020EME033676

PATIENT
  Age: 36 Year
  Sex: Male

DRUGS (1)
  1. LAMISIL [Suspect]
     Active Substance: TERBINAFINE HYDROCHLORIDE
     Indication: FUNGAL SKIN INFECTION
     Dosage: UNK UNK, BID

REACTIONS (10)
  - Chromaturia [Unknown]
  - Extra dose administered [Unknown]
  - Ocular icterus [Unknown]
  - Yellow skin [Unknown]
  - Pruritus [Unknown]
  - Blood cholesterol increased [Unknown]
  - Liver injury [Unknown]
  - Faeces discoloured [Unknown]
  - Fatigue [Unknown]
  - Blood bilirubin increased [Unknown]
